FAERS Safety Report 13225260 (Version 1)
Quarter: 2017Q1

REPORT INFORMATION
  Report Type: Spontaneous
  Country: US (occurrence: US)
  Receive Date: 20170210
  Receipt Date: 20170210
  Transmission Date: 20170428
  Serious: Yes (Hospitalization)
  Sender: FDA-Public Use
  Company Number: None

PATIENT
  Age: 77 Year
  Sex: Male

DRUGS (1)
  1. LUPRON DEPOT [Suspect]
     Active Substance: LEUPROLIDE ACETATE
     Indication: PROSTATE CANCER
     Dosage: 30MG EVERY 4 MONTHS INTRAMUSCULARLY
     Route: 030
     Dates: start: 20160610

REACTIONS (1)
  - Hospitalisation [None]

NARRATIVE: CASE EVENT DATE: 2017
